FAERS Safety Report 4334333-4 (Version None)
Quarter: 2004Q2

REPORT INFORMATION
  Report Type: 
  Country: None (occurrence: None)
  Receive Date: 20040405
  Receipt Date: 20040322
  Transmission Date: 20050107
  Serious: Yes (Other)
  Sender: FDA-Public Use
  Company Number: 2004-UK-00282UK

PATIENT
  Age: 65 Year
  Sex: Female

DRUGS (2)
  1. SPIRIVA [Suspect]
     Indication: ASTHMA
     Dosage: 18 MCG (18 MCG, DAILY), IH
     Route: 055
     Dates: start: 20031205, end: 20040206
  2. COMBIVENT (COMBIVENT /GFR/)(NR) [Concomitant]

REACTIONS (2)
  - BRONCHOSPASM [None]
  - EPISTAXIS [None]
